FAERS Safety Report 9227702 (Version 7)
Quarter: 2013Q3

REPORT INFORMATION
  Report Type: Report from Study
  Country: LT (occurrence: LT)
  Receive Date: 20130412
  Receipt Date: 20130830
  Transmission Date: 20140515
  Serious: Yes (Hospitalization)
  Sender: FDA-Public Use
  Company Number: LT-AMGEN-LTUCT2013025493

PATIENT
  Age: 81 Year
  Sex: Male

DRUGS (4)
  1. DENOSUMAB [Suspect]
     Indication: NEOPLASM MALIGNANT
     Dosage: 1.7 ML, Q4WK
     Route: 058
     Dates: start: 20120322, end: 20130124
  2. TRIPTORELIN [Concomitant]
     Indication: NEOPLASM MALIGNANT
     Dosage: 3.75 MG, Q4WK
     Route: 030
     Dates: start: 20081010
  3. CALCIGRAN [Concomitant]
     Indication: NEOPLASM MALIGNANT
     Dosage: UNK UNK, BID
     Route: 048
     Dates: start: 20090414
  4. CHEMOTHERAPEUTICS [Concomitant]

REACTIONS (1)
  - Osteomyelitis [Not Recovered/Not Resolved]
